FAERS Safety Report 6086028-7 (Version None)
Quarter: 2009Q1

REPORT INFORMATION
  Report Type: 
  Country: None (occurrence: None)
  Receive Date: 20090220
  Receipt Date: 20090217
  Transmission Date: 20090719
  Serious: Yes (Death)
  Sender: FDA-Public Use
  Company Number: US-CELGENEUS-163-21880-09020969

PATIENT
  Sex: Female

DRUGS (2)
  1. REVLIMID [Suspect]
     Indication: MULTIPLE MYELOMA
     Route: 048
     Dates: start: 20090118, end: 20090205
  2. REVLIMID [Suspect]
     Route: 048
     Dates: start: 20081217, end: 20090101

REACTIONS (2)
  - MULTI-ORGAN FAILURE [None]
  - SEPSIS [None]
